FAERS Safety Report 6930790-5 (Version None)
Quarter: 2010Q3

REPORT INFORMATION
  Report Type: 
  Country: None (occurrence: None)
  Receive Date: 20100817
  Receipt Date: 20100817
  Transmission Date: 20110219
  Serious: Yes (Other)
  Sender: FDA-Public Use
  Company Number: None

PATIENT
  Age: 46 Year
  Sex: Female
  Weight: 55.7924 kg

DRUGS (1)
  1. LEXAPRO [Suspect]
     Indication: DEPRESSION
     Dosage: 10MG 1 TABLET DAILY BUCCAL
     Route: 002
     Dates: start: 20090107, end: 20100727

REACTIONS (10)
  - ANXIETY [None]
  - BALANCE DISORDER [None]
  - CONTUSION [None]
  - DIZZINESS [None]
  - DRUG WITHDRAWAL SYNDROME [None]
  - FEELING ABNORMAL [None]
  - IMPAIRED WORK ABILITY [None]
  - LIMB INJURY [None]
  - PAIN IN EXTREMITY [None]
  - PARAESTHESIA [None]
